FAERS Safety Report 8990594 (Version 2)
Quarter: 2013Q2

REPORT INFORMATION
  Report Type: Spontaneous
  Country: US (occurrence: US)
  Receive Date: 20121228
  Receipt Date: 20130409
  Transmission Date: 20140414
  Serious: Yes (Hospitalization, Other)
  Sender: FDA-Public Use
  Company Number: US-PFIZER INC-2012330841

PATIENT
  Age: 73 Year
  Sex: Female
  Weight: 60.77 kg

DRUGS (14)
  1. REVATIO [Suspect]
     Indication: PULMONARY ARTERIAL HYPERTENSION
     Dosage: 20 MG, 3X/DAY
     Route: 048
     Dates: start: 2011
  2. REVATIO [Suspect]
     Dosage: 20 MG, 3X/DAY
     Route: 048
     Dates: start: 20120411
  3. REVATIO [Suspect]
     Dosage: UNK
     Dates: start: 20120215
  4. PREDNISONE [Concomitant]
     Dosage: 20 MG, 1X/DAY
     Dates: start: 20120411
  5. LASIX [Concomitant]
     Indication: FLUID RETENTION
     Dosage: 20 MG, DAILY
     Route: 048
     Dates: start: 20121224
  6. DILTIAZEM HYDROCHLORIDE [Concomitant]
     Dosage: 240 MG, 24-HR
     Route: 048
     Dates: start: 20120730
  7. SERTRALINE HYDROCHLORIDE [Concomitant]
     Dosage: 25 MG, 1X/DAY
     Route: 048
     Dates: start: 20120730
  8. LEVOTHYROXINE SODIUM [Concomitant]
     Dosage: 100 UG, 1X/DAY
     Route: 048
     Dates: start: 20120730
  9. CEPHALEXIN [Concomitant]
     Dosage: 500 MG, 3X/DAY
     Route: 048
     Dates: start: 20120730
  10. CIPROFLOXACIN [Concomitant]
     Dosage: 250 MG, 2X/DAY
     Route: 048
     Dates: start: 20120628
  11. ZANTAC [Concomitant]
     Dosage: 150 MG, 2X/DAY
     Route: 048
     Dates: start: 20120517
  12. KLOR-CON [Concomitant]
     Dosage: 10 MEQ, 1X/DAY
     Route: 048
     Dates: start: 20120517
  13. N-ACETYLCYSTEINE [Concomitant]
     Dosage: 600 MG, 3X/DAY
     Route: 048
     Dates: start: 20120411
  14. MACROBID [Concomitant]
     Dosage: 100 MG, 2X/DAY
     Dates: start: 20120727

REACTIONS (7)
  - Cataract [Unknown]
  - Visual impairment [Unknown]
  - Back pain [Unknown]
  - Spinal fracture [Unknown]
  - Cystitis [Unknown]
  - Chills [Unknown]
  - Gastrooesophageal reflux disease [Unknown]
